FAERS Safety Report 23450819 (Version 1)
Quarter: 2024Q1

REPORT INFORMATION
  Report Type: Spontaneous
  Country: US (occurrence: None)
  Receive Date: 20240126
  Receipt Date: 20240126
  Transmission Date: 20240410
  Serious: No
  Sender: FDA-Public Use
  Company Number: None

PATIENT
  Age: 73 Year
  Sex: Male
  Weight: 96.75 kg

DRUGS (1)
  1. XOLAIR [Suspect]
     Active Substance: OMALIZUMAB
     Indication: Hypersensitivity
     Dosage: FREQUENCY : MONTHLY;?
     Route: 058
     Dates: start: 20230901, end: 20240105

REACTIONS (2)
  - Back pain [None]
  - Myalgia [None]

NARRATIVE: CASE EVENT DATE: 20231115
